FAERS Safety Report 4421440-0 (Version None)
Quarter: 2004Q3

REPORT INFORMATION
  Report Type: 
  Country: None (occurrence: None)
  Receive Date: 20040709
  Receipt Date: 20040520
  Transmission Date: 20050211
  Serious: No
  Sender: FDA-Public Use
  Company Number: 2004S1000100

PATIENT
  Age: 63 Year
  Sex: Female
  Weight: 77 kg

DRUGS (9)
  1. CUBICIN [Suspect]
     Indication: ARTHRITIS BACTERIAL
     Dosage: 500 MG; Q24H; IV
     Route: 042
     Dates: start: 20040502
  2. CUBICIN [Suspect]
     Indication: BURSITIS INFECTIVE STAPHYLOCOCCAL
     Dosage: 500 MG; Q24H; IV
     Route: 042
     Dates: start: 20040502
  3. CUBICIN [Suspect]
     Indication: STAPHYLOCOCCAL INFECTION
     Dosage: 500 MG; Q24H; IV
     Route: 042
     Dates: start: 20040502
  4. VANCOMYCIN [Concomitant]
  5. METOCLOPRAMIDE [Concomitant]
  6. MAXIPIME [Concomitant]
  7. RIFAMPIN [Concomitant]
  8. VANCOMYCIN [Concomitant]
  9. CANCIDAS [Concomitant]

REACTIONS (1)
  - LEUKOPENIA [None]
